FAERS Safety Report 7723575-3 (Version None)
Quarter: 2011Q3

REPORT INFORMATION
  Report Type: 
  Country: None (occurrence: None)
  Receive Date: 20110901
  Receipt Date: 20110823
  Transmission Date: 20111222
  Serious: Yes (Hospitalization)
  Sender: FDA-Public Use
  Company Number: PL-ASTRAZENECA-2011SE51158

PATIENT
  Sex: Male
  Weight: 85 kg

DRUGS (5)
  1. CRESTOR [Suspect]
     Indication: ISCHAEMIC HEART DISEASE PROPHYLAXIS
     Route: 048
     Dates: start: 20091001, end: 20110721
  2. BISOPROLOL FUMARATE [Concomitant]
     Indication: ISCHAEMIC HEART DISEASE PROPHYLAXIS
  3. ACARD [Concomitant]
     Indication: ISCHAEMIC HEART DISEASE PROPHYLAXIS
  4. RAMICOR [Concomitant]
     Indication: ISCHAEMIC HEART DISEASE PROPHYLAXIS
  5. ITRACONAZOLE [Suspect]
     Indication: TINEA PEDIS
     Dosage: DAILY
     Route: 048
     Dates: start: 20110715, end: 20110721

REACTIONS (3)
  - BRADYCARDIA [None]
  - OEDEMA PERIPHERAL [None]
  - MYALGIA [None]
